FAERS Safety Report 7286482-9 (Version None)
Quarter: 2011Q1

REPORT INFORMATION
  Report Type: 
  Country: None (occurrence: None)
  Receive Date: 20110210
  Receipt Date: 20110202
  Transmission Date: 20110831
  Serious: Yes (Other)
  Sender: FDA-Public Use
  Company Number: US-ROCHE-758274

PATIENT
  Sex: Female
  Weight: 90.9 kg

DRUGS (2)
  1. BEVACIZUMAB [Suspect]
     Route: 065
  2. LUCENTIS [Suspect]
     Route: 065

REACTIONS (4)
  - LUNG NEOPLASM MALIGNANT [None]
  - CYSTOCELE [None]
  - RECTOCELE [None]
  - SURGERY [None]
